FAERS Safety Report 16143905 (Version 1)
Quarter: 2019Q2

REPORT INFORMATION
  Report Type: Spontaneous
  Country: VE (occurrence: VE)
  Receive Date: 20190401
  Receipt Date: 20190401
  Transmission Date: 20190711
  Serious: Yes (Death)
  Sender: FDA-Public Use
  Company Number: VE-PFIZER INC-2019128078

PATIENT
  Age: 6 Year
  Sex: Female
  Weight: 19.4 kg

DRUGS (7)
  1. TYGACIL [Suspect]
     Active Substance: TIGECYCLINE
     Indication: SEPSIS
  2. TYGACIL [Suspect]
     Active Substance: TIGECYCLINE
     Indication: SEPTIC SHOCK
     Dosage: 100 MG, DAILY
  3. TYGACIL [Suspect]
     Active Substance: TIGECYCLINE
     Indication: TUBULOINTERSTITIAL NEPHRITIS
  4. TYGACIL [Suspect]
     Active Substance: TIGECYCLINE
     Indication: PERITONITIS
  5. TYGACIL [Suspect]
     Active Substance: TIGECYCLINE
     Indication: PNEUMONIA
  6. TYGACIL [Suspect]
     Active Substance: TIGECYCLINE
     Indication: ACUTE RESPIRATORY DISTRESS SYNDROME
  7. TYGACIL [Suspect]
     Active Substance: TIGECYCLINE
     Indication: PLEURAL EFFUSION

REACTIONS (2)
  - Death [Fatal]
  - Product use issue [Unknown]
